FAERS Safety Report 16442158 (Version 1)
Quarter: 2019Q2

REPORT INFORMATION
  Report Type: Report from Study
  Country: None (occurrence: US)
  Receive Date: 20190617
  Receipt Date: 20190617
  Transmission Date: 20190711
  Serious: Yes (Other)
  Sender: FDA-Public Use
  Company Number: US-US WORLDMEDS, LLC-USW201901-000101

PATIENT
  Age: 79 Year
  Sex: Male

DRUGS (10)
  1. APOKYN [Suspect]
     Active Substance: APOMORPHINE HYDROCHLORIDE
     Dosage: ONLY INJECTED TWICE IN 2 WEEKS; 1/WEEK APPROX
     Route: 058
  2. TRAMADOL. [Concomitant]
     Active Substance: TRAMADOL
  3. REQUIP [Concomitant]
     Active Substance: ROPINIROLE HYDROCHLORIDE
  4. APOKYN [Suspect]
     Active Substance: APOMORPHINE HYDROCHLORIDE
     Indication: PARKINSON^S DISEASE
     Route: 058
     Dates: start: 20180326
  5. STALEVO [Concomitant]
     Active Substance: CARBIDOPA\ENTACAPONE\LEVODOPA
  6. GABAPENTIN. [Concomitant]
     Active Substance: GABAPENTIN
  7. ZOCAR [Concomitant]
  8. APOKYN [Suspect]
     Active Substance: APOMORPHINE HYDROCHLORIDE
     Dosage: ONLY INJECTED TWICE IN 2 WEEKS; 1/WEEK APPROX
     Route: 058
     Dates: start: 20180326, end: 201902
  9. AZILECT [Concomitant]
     Active Substance: RASAGILINE MESYLATE
  10. DEMEROL [Concomitant]
     Active Substance: MEPERIDINE HYDROCHLORIDE

REACTIONS (2)
  - Hypotension [Recovered/Resolved]
  - Dizziness [Recovered/Resolved]

NARRATIVE: CASE EVENT DATE: 201901
